FAERS Safety Report 5743152-3 (Version None)
Quarter: 2008Q2

REPORT INFORMATION
  Report Type: 
  Country: None (occurrence: None)
  Receive Date: 20080519
  Receipt Date: 20080428
  Transmission Date: 20081010
  Serious: No
  Sender: FDA-Public Use
  Company Number: US-BOEHRINGER INGELHEIM GMBH, GERMANY-2008-BP-06655BP

PATIENT
  Sex: Female

DRUGS (18)
  1. AGGRENOX [Suspect]
     Indication: CEREBROVASCULAR ACCIDENT PROPHYLAXIS
     Dosage: 50MG ASPIRIN/400MG EXTENDED RELEASE DIPYRIDAMOLE
     Route: 048
     Dates: start: 20060223
  2. BENICAR HCT [Concomitant]
     Indication: HYPERTENSION
  3. ATENOLOL [Concomitant]
     Indication: HYPERTENSION
  4. ACTOS [Concomitant]
     Indication: DIABETES MELLITUS
  5. LIPITOR [Concomitant]
     Indication: BLOOD CHOLESTEROL INCREASED
  6. GABAPENTIN [Concomitant]
     Indication: PAIN
  7. NEXIUM [Concomitant]
     Indication: PROPHYLAXIS AGAINST GASTROINTESTINAL ULCER
  8. TRUSOPT [Concomitant]
     Indication: GLAUCOMA
     Route: 031
  9. XALATAN [Concomitant]
     Indication: GLAUCOMA
     Route: 031
  10. FENOFIBRATE [Concomitant]
     Indication: BLOOD CHOLESTEROL INCREASED
  11. ENABLEX SR [Concomitant]
  12. VITAMIN B-12 [Concomitant]
     Indication: MEDICAL DIET
  13. LANTUS [Concomitant]
     Indication: DIABETES MELLITUS
  14. JANUVIA [Concomitant]
     Indication: DIABETES MELLITUS
  15. VITAMIN D [Concomitant]
  16. TYLENOL PM [Concomitant]
     Indication: INSOMNIA
  17. DULCOLAX [Concomitant]
     Indication: FAECES HARD
  18. FIBERCON [Concomitant]

REACTIONS (1)
  - EPISTAXIS [None]
